FAERS Safety Report 13455477 (Version 1)
Quarter: 2017Q2

REPORT INFORMATION
  Report Type: Spontaneous
  Country: AU (occurrence: AU)
  Receive Date: 20170418
  Receipt Date: 20170418
  Transmission Date: 20170830
  Serious: Yes (Life-Threatening, Hospitalization, Other)
  Sender: FDA-Public Use
  Company Number: AU-BAYER-2017-056637

PATIENT
  Age: 25 Year
  Sex: Female

DRUGS (1)
  1. YAZ [Suspect]
     Active Substance: DROSPIRENONE\ETHINYL ESTRADIOL
     Indication: METRORRHAGIA
     Route: 048

REACTIONS (13)
  - Cerebrovascular accident [Recovering/Resolving]
  - Brain stem stroke [Recovering/Resolving]
  - Ischaemic stroke [None]
  - Dizziness [Recovering/Resolving]
  - Locked-in syndrome [Recovering/Resolving]
  - Dysarthria [Recovering/Resolving]
  - Muscle spasticity [Recovering/Resolving]
  - Aphasia [Recovering/Resolving]
  - Vomiting [Recovering/Resolving]
  - Neck pain [Recovering/Resolving]
  - Abasia [Recovering/Resolving]
  - Quadriplegia [None]
  - Dysphagia [Recovering/Resolving]

NARRATIVE: CASE EVENT DATE: 201607
